FAERS Safety Report 8986111 (Version 2)
Quarter: 2013Q2

REPORT INFORMATION
  Report Type: Spontaneous
  Country: FR (occurrence: None)
  Receive Date: 20121005
  Receipt Date: 20121023
  Transmission Date: 20140414
  Serious: Yes (Other)
  Sender: FDA-Public Use
  Company Number: 218986

PATIENT
  Age: 42 Year
  Sex: Female

DRUGS (3)
  1. INNOHEP (TINZAPARIN SODIUM) [Suspect]
     Indication: PRODUCT USED FOR UNKNOWN INDICATION
     Route: 058
     Dates: start: 20120323, end: 20120331
  2. INNOHEP (TINZAPARIN SODIUM) [Suspect]
     Indication: THROMBOSIS PROPHYLAXIS
     Route: 058
     Dates: start: 20120323, end: 20120331
  3. NSAIDS (NSAID^S) [Concomitant]

REACTIONS (9)
  - Erythema [None]
  - Injection site reaction [None]
  - Purpura [None]
  - Arthralgia [None]
  - Arthralgia [None]
  - Hypergammaglobulinaemia [None]
  - C-reactive protein increased [None]
  - Bacteriuria [None]
  - Cutaneous vasculitis [None]
